FAERS Safety Report 7094107-0 (Version None)
Quarter: 2010Q4

REPORT INFORMATION
  Report Type: 
  Country: None (occurrence: None)
  Receive Date: 20101110
  Receipt Date: 20101028
  Transmission Date: 20110411
  Serious: Yes (Death, Hospitalization)
  Sender: FDA-Public Use
  Company Number: CH-AMGEN-CHESP2010002960

PATIENT

DRUGS (2)
  1. ENBREL [Suspect]
     Indication: RHEUMATOID ARTHRITIS
     Dosage: CYCLIC
     Route: 042
     Dates: start: 20080101, end: 20090301
  2. ENBREL [Suspect]

REACTIONS (10)
  - AMNESIA [None]
  - ATAXIA [None]
  - CEREBRAL HAEMORRHAGE [None]
  - DEATH [None]
  - DYSKINESIA [None]
  - FALL [None]
  - HYDROCEPHALUS [None]
  - INTRACRANIAL PRESSURE INCREASED [None]
  - PNEUMONIA [None]
  - URINARY INCONTINENCE [None]
